FAERS Safety Report 16612076 (Version 1)
Quarter: 2019Q3

REPORT INFORMATION
  Report Type: Spontaneous
  Country: IT (occurrence: IT)
  Receive Date: 20190722
  Receipt Date: 20190722
  Transmission Date: 20191004
  Serious: Yes (Other)
  Sender: FDA-Public Use
  Company Number: PHHY2019IT166263

PATIENT
  Age: 61 Year
  Sex: Male

DRUGS (3)
  1. ZYKADIA [Suspect]
     Active Substance: CERITINIB
     Dosage: 450 MG, UNK
     Route: 065
     Dates: start: 20190516, end: 201907
  2. ZYKADIA [Suspect]
     Active Substance: CERITINIB
     Indication: PRODUCT USED FOR UNKNOWN INDICATION
     Dosage: 750 MG, UNK
     Route: 065
     Dates: start: 20180410, end: 20190325
  3. ZYKADIA [Suspect]
     Active Substance: CERITINIB
     Dosage: UNK
     Route: 065
     Dates: end: 201904

REACTIONS (4)
  - Malignant neoplasm progression [Unknown]
  - Hepatotoxicity [Recovered/Resolved]
  - Therapy partial responder [Unknown]
  - Neoplasm [Unknown]

NARRATIVE: CASE EVENT DATE: 201904
